FAERS Safety Report 9356942 (Version 2)
Quarter: 2013Q3

REPORT INFORMATION
  Report Type: Spontaneous
  Country: GB (occurrence: GB)
  Receive Date: 20130620
  Receipt Date: 20130726
  Transmission Date: 20140515
  Serious: Yes (Hospitalization)
  Sender: FDA-Public Use
  Company Number: GB-ROCHE-1239002

PATIENT
  Age: 67 Year
  Sex: Female

DRUGS (12)
  1. RITUXIMAB [Suspect]
     Indication: PRODUCT USED FOR UNKNOWN INDICATION
     Route: 065
     Dates: start: 20130529
  2. BORTEZOMIB [Suspect]
     Indication: PRODUCT USED FOR UNKNOWN INDICATION
     Route: 065
  3. CYCLOPHOSPHAMIDE [Suspect]
     Indication: PRODUCT USED FOR UNKNOWN INDICATION
     Route: 065
  4. DOXORUBICIN [Suspect]
     Indication: PRODUCT USED FOR UNKNOWN INDICATION
     Route: 042
  5. PREDNISOLONE [Suspect]
     Indication: PRODUCT USED FOR UNKNOWN INDICATION
     Route: 065
  6. VINCRISTINE [Suspect]
     Indication: PRODUCT USED FOR UNKNOWN INDICATION
     Route: 065
  7. ACYCLOVIR [Concomitant]
     Route: 048
  8. ALLOPURINOL [Concomitant]
     Route: 048
     Dates: start: 20130525
  9. CO-TRIMOXAZOLE [Concomitant]
     Route: 048
     Dates: start: 20130529
  10. DOMPERIDONE [Concomitant]
     Route: 048
     Dates: start: 20130528
  11. FLUCONAZOLE [Concomitant]
     Route: 048
     Dates: start: 20130524
  12. OMEPRAZOLE [Concomitant]
     Route: 048
     Dates: start: 20130518

REACTIONS (2)
  - Pollakiuria [Not Recovered/Not Resolved]
  - Urinary tract infection [Not Recovered/Not Resolved]
